FAERS Safety Report 8916660 (Version 1)
Quarter: 2012Q4

REPORT INFORMATION
  Report Type: 
  Country: SE (occurrence: SE)
  Receive Date: 20121120
  Receipt Date: 20121120
  Transmission Date: 20130627
  Serious: Yes (Hospitalization)
  Sender: FDA-Public Use
  Company Number: SE-PFIZER INC-2012285676

PATIENT
  Age: 64 Year
  Sex: Male
  Weight: 111.9 kg

DRUGS (6)
  1. GENOTROPIN [Suspect]
     Dosage: 0.4 mg, 1x/day,7 injections/week
     Route: 058
     Dates: start: 20041026
  2. TENORMIN [Concomitant]
     Indication: ESSENTIAL HYPERTENSION
     Dosage: UNK
     Dates: start: 20000506
  3. MICARDIS [Concomitant]
     Indication: ESSENTIAL HYPERTENSION
     Dosage: UNK
     Dates: start: 20010102
  4. ATMOS [Concomitant]
     Indication: LUTEINISING HORMONE DEFICIENCY
     Dosage: UNK
     Dates: start: 20011015
  5. ATMOS [Concomitant]
     Indication: FOLLICLE-STIMULATING HORMONE DEFICIENCY
  6. ATMOS [Concomitant]
     Indication: TESTICULAR HYPOGONADISM

REACTIONS (1)
  - Pityriasis rosea [Unknown]
